FAERS Safety Report 7969214-8 (Version None)
Quarter: 2011Q4

REPORT INFORMATION
  Report Type: 
  Country: None (occurrence: None)
  Receive Date: 20111209
  Receipt Date: 20111025
  Transmission Date: 20120403
  Serious: Yes (Hospitalization, Other)
  Sender: FDA-Public Use
  Company Number: BR-ASTRAZENECA-2011SE64696

PATIENT
  Age: 66 Year
  Sex: Male
  Weight: 85 kg

DRUGS (15)
  1. GLIMEPIRIDE [Suspect]
     Route: 048
  2. HUMAN NPH INSULIN [Suspect]
     Dosage: 5 IU AFTER DINNER
     Route: 058
  3. METFORMIN HCL [Suspect]
     Route: 048
  4. HUMAN NPH INSULIN [Suspect]
     Dosage: 10 IU AT BREAK FAST
     Route: 058
  5. OMEPRAZOLE [Suspect]
     Route: 048
  6. HUMAN NPH INSULIN [Suspect]
     Route: 058
  7. ASPIRIN [Suspect]
     Route: 065
  8. LOSARTAN POTASSIUM [Suspect]
     Route: 065
  9. GLIMEPIRIDE [Suspect]
     Route: 048
  10. METOPROLOL TARTRATE [Suspect]
     Route: 048
  11. ROSUVASTATIN [Suspect]
     Route: 048
  12. HUMAN NPH INSULIN [Suspect]
     Route: 058
  13. HUMAN NPH INSULIN [Suspect]
     Route: 058
  14. CLOPIDOGREL [Suspect]
     Route: 065
  15. GALVUS [Suspect]
     Route: 065

REACTIONS (10)
  - TYPE 2 DIABETES MELLITUS [None]
  - HYPERTENSION [None]
  - PERIPHERAL PULSE DECREASED [None]
  - POLYNEUROPATHY [None]
  - MYOCARDIAL ISCHAEMIA [None]
  - BLOOD GLUCOSE INCREASED [None]
  - DIABETIC NEUROPATHY [None]
  - DYSLIPIDAEMIA [None]
  - HYPOGLYCAEMIA [None]
  - ANGINA PECTORIS [None]
